FAERS Safety Report 20556255 (Version 2)
Quarter: 2022Q1

REPORT INFORMATION
  Report Type: Report from Study
  Country: GT (occurrence: GT)
  Receive Date: 20220305
  Receipt Date: 20220317
  Transmission Date: 20220423
  Serious: Yes (Other)
  Sender: FDA-Public Use
  Company Number: GT-NOVARTISPH-NVSC2021GT060723

PATIENT
  Age: 75 Year
  Sex: Female
  Weight: 71.214 kg

DRUGS (3)
  1. EXFORGE [Suspect]
     Active Substance: AMLODIPINE BESYLATE\VALSARTAN
     Indication: Hypertension
     Dosage: UNK (160/5 MG)
     Route: 065
     Dates: start: 202101, end: 202103
  2. EXFORGE [Suspect]
     Active Substance: AMLODIPINE BESYLATE\VALSARTAN
     Dosage: UNK (160/5 MG)
     Route: 065
     Dates: start: 20210208, end: 20210309
  3. EXFORGE [Suspect]
     Active Substance: AMLODIPINE BESYLATE\VALSARTAN
     Dosage: 1 DOSAGE FORM OF 10/320 MG, QD
     Route: 048
     Dates: start: 202103

REACTIONS (7)
  - Loss of consciousness [Unknown]
  - Peripheral venous disease [Recovered/Resolved]
  - Thrombosis [Recovered/Resolved]
  - Blood pressure increased [Unknown]
  - Reading disorder [Unknown]
  - Illness [Unknown]
  - Heat exhaustion [Recovered/Resolved]

NARRATIVE: CASE EVENT DATE: 20210701
